FAERS Safety Report 10267537 (Version 1)
Quarter: 2014Q2

REPORT INFORMATION
  Report Type: Spontaneous
  Country: DE (occurrence: None)
  Receive Date: 20140623
  Receipt Date: 20140623
  Transmission Date: 20141212
  Serious: Yes (Other)
  Sender: FDA-Public Use
  Company Number: NGX_02404_2014

PATIENT
  Age: 81 Year
  Sex: Female

DRUGS (5)
  1. QUTENZA [Suspect]
     Indication: HERPES ZOSTER
     Dosage: 2 DF [PATCH]
     Route: 061
     Dates: start: 20140422, end: 20140422
  2. VERSATIS [Suspect]
     Indication: PRODUCT USED FOR UNKNOWN INDICATION
     Dosage: (DF)
  3. LYRICA [Concomitant]
  4. TRAMADOL [Concomitant]
  5. METAMIZOLE [Concomitant]

REACTIONS (2)
  - Erythema [None]
  - Drug intolerance [None]
